FAERS Safety Report 9288237 (Version 1)
Quarter: 2013Q2

REPORT INFORMATION
  Report Type: Spontaneous
  Country: US (occurrence: US)
  Receive Date: 20130514
  Receipt Date: 20130514
  Transmission Date: 20140414
  Serious: Yes (Other)
  Sender: FDA-Public Use
  Company Number: US-PFIZER INC-2013146773

PATIENT
  Age: 50 Year
  Sex: Female
  Weight: 77.1 kg

DRUGS (3)
  1. NITROSTAT [Suspect]
     Indication: ANGINA PECTORIS
     Dosage: 0.4 MG, AS NEEDED
  2. NITROSTAT [Suspect]
     Indication: CHEST PAIN
  3. LISINOPRIL [Concomitant]
     Indication: HYPERTENSION
     Dosage: 20 MG, 1X/DAY

REACTIONS (1)
  - Diabetes mellitus [Not Recovered/Not Resolved]
